FAERS Safety Report 22191320 (Version 7)
Quarter: 2025Q3

REPORT INFORMATION
  Report Type: Spontaneous
  Country: US (occurrence: US)
  Receive Date: 20230410
  Receipt Date: 20250918
  Transmission Date: 20251021
  Serious: Yes (Other)
  Sender: PFIZER
  Company Number: US-PFIZER INC-202300145195

PATIENT
  Age: 74 Year
  Sex: Female
  Weight: 72.57 kg

DRUGS (1)
  1. PREMARIN [Suspect]
     Active Substance: ESTROGENS, CONJUGATED
     Dosage: 0.65, 2X/WEEK
     Route: 067

REACTIONS (8)
  - Autoimmune disorder [Unknown]
  - Product prescribing error [Unknown]
  - Urinary incontinence [Unknown]
  - Vulvovaginal pruritus [Unknown]
  - Fatigue [Unknown]
  - Aphasia [Unknown]
  - Middle insomnia [Unknown]
  - Mental status changes [Unknown]
